FAERS Safety Report 5423043-8 (Version None)
Quarter: 2007Q3

REPORT INFORMATION
  Report Type: 
  Country: None (occurrence: None)
  Receive Date: 20070821
  Receipt Date: 20070820
  Transmission Date: 20080115
  Serious: Yes (Hospitalization)
  Sender: FDA-Public Use
  Company Number: OSI-774UA2005

PATIENT
  Age: 43 Year
  Sex: Female
  Weight: 85.5 kg

DRUGS (2)
  1. TARCEVA [Suspect]
     Indication: METASTASES TO CENTRAL NERVOUS SYSTEM
     Dosage: 150MG P.O QDAY
     Dates: start: 20070702, end: 20070810
  2. TARCEVA [Suspect]
     Indication: NON-SMALL CELL LUNG CANCER
     Dosage: 150MG P.O QDAY
     Dates: start: 20070702, end: 20070810

REACTIONS (8)
  - CELLULITIS [None]
  - HEADACHE [None]
  - HYPOXIA [None]
  - LUNG ADENOCARCINOMA [None]
  - METASTASES TO CENTRAL NERVOUS SYSTEM [None]
  - PLEURAL EFFUSION [None]
  - POSITRON EMISSION TOMOGRAM ABNORMAL [None]
  - PYREXIA [None]
